FAERS Safety Report 4323089-7 (Version None)
Quarter: 2004Q1

REPORT INFORMATION
  Report Type: 
  Country: None (occurrence: None)
  Receive Date: 20040322
  Receipt Date: 20040308
  Transmission Date: 20041129
  Serious: Yes (Other)
  Sender: FDA-Public Use
  Company Number: NSADSS2003017018

PATIENT
  Age: 47 Year
  Sex: Female
  Weight: 55.7924 kg

DRUGS (1)
  1. REMICADE [Suspect]
     Indication: CROHN'S DISEASE
     Dosage: INTRAVENOUS DRIP, 5 MG/KG; INTRAVENOUS DRIP
     Route: 041
     Dates: start: 20021009, end: 20021009

REACTIONS (17)
  - AMNESIA [None]
  - APHASIA [None]
  - ASTHENIA [None]
  - BALANCE DISORDER [None]
  - COGNITIVE DISORDER [None]
  - COMPLICATED MIGRAINE [None]
  - DEMYELINATION [None]
  - DYSARTHRIA [None]
  - FALL [None]
  - GLIOSIS [None]
  - HEADACHE [None]
  - HEMIPARESIS [None]
  - HYPERTHYROIDISM [None]
  - HYPOAESTHESIA [None]
  - ISCHAEMIC CEREBRAL INFARCTION [None]
  - MENTAL STATUS CHANGES [None]
  - NUCLEAR MAGNETIC RESONANCE IMAGING BRAIN ABNORMAL [None]
